FAERS Safety Report 9442686 (Version 1)
Quarter: 2013Q3

REPORT INFORMATION
  Report Type: Spontaneous
  Country: US (occurrence: None)
  Receive Date: 20130805
  Receipt Date: 20130805
  Transmission Date: 20140515
  Serious: No
  Sender: FDA-Public Use
  Company Number: None

PATIENT
  Age: 49 Year
  Sex: Female

DRUGS (1)
  1. TECFIDERA [Suspect]
     Indication: MULTIPLE SCLEROSIS
     Route: 048
     Dates: start: 20130608, end: 20130706

REACTIONS (7)
  - Rash [None]
  - Flushing [None]
  - Nausea [None]
  - Diarrhoea [None]
  - Abdominal pain [None]
  - Dehydration [None]
  - Skin burning sensation [None]
